FAERS Safety Report 5678198-7 (Version None)
Quarter: 2008Q1

REPORT INFORMATION
  Report Type: 
  Country: None (occurrence: None)
  Receive Date: 20080325
  Receipt Date: 20080313
  Transmission Date: 20080703
  Serious: Yes (Other)
  Sender: FDA-Public Use
  Company Number: HQWYE211117JUL04

PATIENT
  Sex: Female
  Weight: 61.29 kg

DRUGS (2)
  1. PREMARIN [Suspect]
     Indication: HORMONE REPLACEMENT THERAPY
     Dosage: UNKNOWN
     Route: 048
     Dates: start: 19800101, end: 20011001
  2. ESTROGENS [Suspect]

REACTIONS (2)
  - BREAST CANCER [None]
  - TRANSIENT ISCHAEMIC ATTACK [None]
